FAERS Safety Report 10385889 (Version 1)
Quarter: 2014Q3

REPORT INFORMATION
  Report Type: Spontaneous
  Country: DK (occurrence: DK)
  Receive Date: 20140814
  Receipt Date: 20140814
  Transmission Date: 20150326
  Serious: Yes (Hospitalization)
  Sender: FDA-Public Use
  Company Number: DK-PFIZER INC-2014225790

PATIENT
  Age: 67 Year
  Sex: Male

DRUGS (10)
  1. THYCAPZOL [Concomitant]
     Active Substance: METHIMAZOLE
     Dosage: UNK
  2. METOPROLOL TARTRATE. [Concomitant]
     Active Substance: METOPROLOL TARTRATE
     Dosage: UNK
  3. CITALOPRAM [Concomitant]
     Active Substance: CITALOPRAM HYDROBROMIDE
     Dosage: UNK
  4. ELTROXIN [Concomitant]
     Active Substance: LEVOTHYROXINE
     Dosage: UNK
  5. MAREVAN [Concomitant]
     Active Substance: WARFARIN SODIUM
     Dosage: UNK
  6. CORDARONE [Suspect]
     Active Substance: AMIODARONE HYDROCHLORIDE
     Dosage: UNK
     Route: 065
     Dates: start: 200206, end: 200302
  7. MEVACOR [Concomitant]
     Active Substance: LOVASTATIN
     Dosage: UNK
  8. CORDARONE [Suspect]
     Active Substance: AMIODARONE HYDROCHLORIDE
     Dosage: 300 MG, 2X/DAY
     Route: 065
     Dates: start: 2010
  9. MAGNYL [Concomitant]
     Active Substance: ASPIRIN
     Dosage: UNK
  10. TRAMADOL [Concomitant]
     Active Substance: TRAMADOL
     Dosage: UNK

REACTIONS (7)
  - Epistaxis [Recovered/Resolved]
  - Basedow^s disease [Not Recovered/Not Resolved]
  - Rib fracture [Recovered/Resolved]
  - Osteoporosis [Not Recovered/Not Resolved]
  - Respiratory tract haemorrhage [Recovered/Resolved]
  - Palpitations [Recovered/Resolved]
  - Foreign body sensation in eyes [Not Recovered/Not Resolved]

NARRATIVE: CASE EVENT DATE: 200302
